FAERS Safety Report 7315951-8 (Version None)
Quarter: 2011Q1

REPORT INFORMATION
  Report Type: 
  Country: None (occurrence: None)
  Receive Date: 20110218
  Receipt Date: 20110218
  Transmission Date: 20110831
  Serious: No
  Sender: FDA-Public Use
  Company Number: None

PATIENT
  Age: 72 Year
  Sex: Female
  Weight: 61.6892 kg

DRUGS (2)
  1. ARIMIDEX [Suspect]
     Indication: BREAST CANCER
     Dosage: 1 MG ONCE DAILY PO
     Route: 048
     Dates: start: 20100402, end: 20110217
  2. ARIMIDEX [Suspect]
     Indication: OESTROGEN RECEPTOR ASSAY POSITIVE
     Dosage: 1 MG ONCE DAILY PO
     Route: 048
     Dates: start: 20100402, end: 20110217

REACTIONS (3)
  - TRIGGER FINGER [None]
  - ARTHRALGIA [None]
  - FEELING ABNORMAL [None]
